FAERS Safety Report 15902971 (Version 1)
Quarter: 2019Q1

REPORT INFORMATION
  Report Type: Spontaneous
  Country: DE (occurrence: DE)
  Receive Date: 20190202
  Receipt Date: 20190202
  Transmission Date: 20190417
  Serious: Yes (Hospitalization, Other)
  Sender: FDA-Public Use
  Company Number: DE-AUROBINDO-AUR-APL-2019-004739

PATIENT

DRUGS (14)
  1. PARACETAMOL STADA [Suspect]
     Active Substance: ACETAMINOPHEN
     Indication: NASOPHARYNGITIS
     Dosage: UNK
     Route: 048
     Dates: start: 20011128
  2. ORFIRIL DESITIN [Suspect]
     Active Substance: VALPROATE SODIUM
     Indication: PRODUCT USED FOR UNKNOWN INDICATION
     Dosage: 100 MILLIGRAM, ONCE A DAY
     Route: 048
     Dates: start: 1996, end: 20011112
  3. LEPTILAN [Suspect]
     Active Substance: VALPROATE SODIUM
     Indication: EPILEPSY
     Dosage: 300 MILLIGRAM, ONCE A DAY
     Route: 048
     Dates: start: 20011113
  4. METOCLOPRAMIDE HYDROCHLORIDE. [Suspect]
     Active Substance: METOCLOPRAMIDE HYDROCHLORIDE
     Indication: NAUSEA
     Dosage: 20 GTT DROPS, 3 TIMES A DAY
     Route: 048
     Dates: start: 20011128
  5. BALDRIAN [Suspect]
     Active Substance: VALERIAN
     Indication: PRODUCT USED FOR UNKNOWN INDICATION
     Dosage: UNK
     Route: 048
  6. PHENYTOIN. [Suspect]
     Active Substance: PHENYTOIN
     Indication: EPILEPSY
     Dosage: UNK
     Route: 048
     Dates: start: 20011025
  7. CARBAMAZEPINE. [Suspect]
     Active Substance: CARBAMAZEPINE
     Indication: EPILEPSY
     Dosage: UNK
     Route: 048
     Dates: start: 1978, end: 20011112
  8. TAXOFIT [Suspect]
     Active Substance: MINERALS\VITAMINS
     Indication: FATIGUE
     Dosage: UNK
     Route: 048
     Dates: start: 20011127
  9. ERGENYL CHRONO [Suspect]
     Active Substance: VALPROIC ACID
     Indication: EPILEPSY
     Dosage: 1000 MILLIGRAM, TWO TIMES A DAY
     Route: 048
     Dates: start: 20011113
  10. ORFIRIL DESITIN [Suspect]
     Active Substance: VALPROATE SODIUM
     Dosage: 300 MILLIGRAM, ONCE A DAY
     Route: 048
     Dates: start: 1996, end: 1996
  11. SAGE LEAF [Suspect]
     Active Substance: HERBALS\SAGE
     Indication: NASOPHARYNGITIS
     Dosage: UNK
     Route: 065
     Dates: start: 20011201
  12. VALERIAN EXTRACT [Suspect]
     Active Substance: VALERIAN EXTRACT
     Indication: RESTLESSNESS
     Dosage: UNK
     Route: 065
     Dates: start: 20011201
  13. RANITIDINE. [Suspect]
     Active Substance: RANITIDINE
     Indication: PRODUCT USED FOR UNKNOWN INDICATION
     Dosage: 300 MILLIGRAM, ONCE A DAY
     Route: 048
  14. KAMILLOSAN KONZENTRAT LOESUNG [Suspect]
     Active Substance: HERBALS\HOMEOPATHICS\MATRICARIA RECUTITA
     Indication: PRODUCT USED FOR UNKNOWN INDICATION
     Dosage: UNK, ONCE/SINGLE
     Route: 065
     Dates: start: 20011201, end: 20011201

REACTIONS (19)
  - Alanine aminotransferase increased [Unknown]
  - Oral mucosa erosion [Recovering/Resolving]
  - Nausea [Unknown]
  - Fatigue [Unknown]
  - Pyrexia [Recovering/Resolving]
  - Gamma-glutamyltransferase increased [Unknown]
  - Epilepsy [Unknown]
  - Liver function test abnormal [Unknown]
  - Dysphagia [Unknown]
  - Swelling face [Recovering/Resolving]
  - Aspartate aminotransferase increased [Unknown]
  - Nasopharyngitis [Unknown]
  - Pruritus [Recovering/Resolving]
  - Restlessness [Unknown]
  - Stevens-Johnson syndrome [Recovering/Resolving]
  - Lip swelling [None]
  - Erythema [Recovering/Resolving]
  - Rash macular [Recovering/Resolving]
  - Genital erythema [None]

NARRATIVE: CASE EVENT DATE: 20011127
